FAERS Safety Report 25398863 (Version 2)
Quarter: 2025Q2

REPORT INFORMATION
  Report Type: Report from Study
  Country: AU (occurrence: AU)
  Receive Date: 20250604
  Receipt Date: 20250624
  Transmission Date: 20250716
  Serious: Yes (Hospitalization)
  Sender: ABBVIE
  Company Number: AU-ABBVIE-6203231

PATIENT
  Age: 27 Year
  Sex: Female

DRUGS (1)
  1. SKYRIZI [Suspect]
     Active Substance: RISANKIZUMAB-RZAA
     Indication: Psoriasis
     Route: 058
     Dates: end: 2024

REACTIONS (9)
  - Gastric operation [Unknown]
  - Malaise [Unknown]
  - Treatment noncompliance [Unknown]
  - Respiratory disorder [Unknown]
  - Influenza [Not Recovered/Not Resolved]
  - Adverse drug reaction [Unknown]
  - Blood iron decreased [Unknown]
  - Cortisol increased [Unknown]
  - Depression [Unknown]

NARRATIVE: CASE EVENT DATE: 20240101
